FAERS Safety Report 13027078 (Version 1)
Quarter: 2016Q4

REPORT INFORMATION
  Report Type: Spontaneous
  Country: US (occurrence: US)
  Receive Date: 20161214
  Receipt Date: 20161214
  Transmission Date: 20170207
  Serious: Yes (Death, Hospitalization)
  Sender: FDA-Public Use
  Company Number: None

PATIENT
  Age: 63 Year
  Sex: Male
  Weight: 96.6 kg

DRUGS (3)
  1. 5-FLUOROURACIL (5-FU) [Suspect]
     Active Substance: FLUOROURACIL
     Dates: end: 20161119
  2. CAMPTOSAR [Suspect]
     Active Substance: IRINOTECAN HYDROCHLORIDE
     Dates: end: 20161117
  3. ELOXATIN [Suspect]
     Active Substance: OXALIPLATIN
     Dates: end: 20161117

REACTIONS (5)
  - Acute myocardial infarction [None]
  - Loss of consciousness [None]
  - Cardiac arrest [None]
  - Apnoea [None]
  - Pulmonary embolism [None]

NARRATIVE: CASE EVENT DATE: 20161205
